FAERS Safety Report 7161309-4 (Version None)
Quarter: 2010Q4

REPORT INFORMATION
  Report Type: 
  Country: None (occurrence: None)
  Receive Date: 20101210
  Receipt Date: 20101210
  Transmission Date: 20110411
  Serious: No
  Sender: FDA-Public Use
  Company Number: None

PATIENT
  Sex: Female

DRUGS (2)
  1. LEVOTHYROXINE SODIUM [Suspect]
  2. CELEXA [Suspect]

REACTIONS (7)
  - AGITATION [None]
  - ANXIETY [None]
  - BLOOD THYROID STIMULATING HORMONE ABNORMAL [None]
  - FATIGUE [None]
  - IRRITABILITY [None]
  - PAIN IN EXTREMITY [None]
  - WEIGHT INCREASED [None]
